FAERS Safety Report 7584312-9 (Version None)
Quarter: 2011Q2

REPORT INFORMATION
  Report Type: 
  Country: None (occurrence: None)
  Receive Date: 20110630
  Receipt Date: 20110627
  Transmission Date: 20111010
  Serious: Yes (Life-Threatening, Hospitalization)
  Sender: FDA-Public Use
  Company Number: FI-PFIZER INC-2011141928

PATIENT
  Age: 23 Year
  Sex: Female

DRUGS (8)
  1. RITUXAN [Suspect]
     Dosage: UNK
     Route: 042
     Dates: start: 20110309, end: 20110309
  2. SULFASALAZINE [Suspect]
     Indication: JUVENILE ARTHRITIS
     Dosage: UNK
     Route: 048
  3. NALTREXONE HYDROCHLORIDE [Suspect]
     Dosage: 25 MG, WEEKLY
  4. OXIKLORIN [Concomitant]
     Dosage: 100 MG, 1X/DAY
     Route: 048
  5. RITUXAN [Suspect]
     Indication: JUVENILE ARTHRITIS
     Dosage: UNK
     Route: 042
     Dates: start: 20090801
  6. NALTREXONE HYDROCHLORIDE [Suspect]
     Dosage: 25 MG, WEEKLY
     Route: 048
     Dates: start: 20110301
  7. RITUXAN [Suspect]
     Dosage: UNK
     Route: 042
     Dates: start: 20100101, end: 20100101
  8. RITUXAN [Suspect]
     Dosage: UNK
     Route: 042
     Dates: start: 20110323, end: 20110323

REACTIONS (2)
  - PNEUMONIA [None]
  - NEUTROPENIA [None]
